FAERS Safety Report 6848304-7 (Version None)
Quarter: 2010Q3

REPORT INFORMATION
  Report Type: 
  Country: None (occurrence: None)
  Receive Date: 20100716
  Receipt Date: 20100708
  Transmission Date: 20110219
  Serious: Yes (Other)
  Sender: FDA-Public Use
  Company Number: US-JNJFOC-20100701158

PATIENT
  Age: 2 Year
  Sex: Male

DRUGS (6)
  1. CHILDREN'S MOTRIN [Suspect]
     Indication: PAIN
     Route: 048
  2. CHILDREN'S MOTRIN [Suspect]
     Indication: EAR INFECTION
     Route: 048
  3. CHILDREN'S TYLENOL SUSPENSION [Suspect]
  4. CHILDREN'S TYLENOL SUSPENSION [Suspect]
     Indication: PAIN
  5. BENADRYL [Suspect]
     Indication: PRODUCT USED FOR UNKNOWN INDICATION
  6. ANTIBIOTIC [Concomitant]
     Indication: EAR INFECTION

REACTIONS (3)
  - EAR PAIN [None]
  - PRODUCT QUALITY ISSUE [None]
  - TIC [None]
